FAERS Safety Report 6969909-9 (Version None)
Quarter: 2010Q3

REPORT INFORMATION
  Report Type: 
  Country: None (occurrence: None)
  Receive Date: 20100908
  Receipt Date: 20100825
  Transmission Date: 20110219
  Serious: Yes (Hospitalization)
  Sender: FDA-Public Use
  Company Number: EG-BAYER-201037120GPV

PATIENT
  Age: 67 Year
  Sex: Male

DRUGS (16)
  1. SORAFENIB [Suspect]
     Indication: HEPATIC NEOPLASM MALIGNANT
     Dosage: TOTAL DAILY DOSE: 800 MG  UNIT DOSE: 200 MG
     Route: 048
     Dates: start: 20100523, end: 20100613
  2. ABT-869 (LINIFANIB) (DRUG NOT GIVEN) [Suspect]
     Indication: HEPATIC NEOPLASM MALIGNANT
  3. CAPTOPRIL [Concomitant]
     Indication: HYPERTENSION
     Dosage: TOTAL DAILY DOSE: 25 MG
     Dates: start: 20091001
  4. BISOPROLOL FUMARATE [Concomitant]
     Indication: HYPERTENSION
     Dosage: TOTAL DAILY DOSE: 5 MG
     Dates: start: 20091001
  5. NITROGLYCERIN [Concomitant]
     Indication: ISCHAEMIA
     Dates: start: 20091001
  6. URSODIOL [Concomitant]
     Indication: HEPATIC NEOPLASM MALIGNANT
     Dosage: TOTAL DAILY DOSE: 600 MG
     Dates: start: 20091101
  7. ORNITHINE [Concomitant]
     Indication: HEPATIC NEOPLASM MALIGNANT
     Dosage: TOTAL DAILY DOSE: 3 MG
     Dates: start: 20091101
  8. SILYBUM MARIANUM [Concomitant]
     Indication: HEPATIC NEOPLASM MALIGNANT
     Dosage: TOTAL DAILY DOSE: 280 MG
     Dates: start: 20091101
  9. FOLIC ACID [Concomitant]
     Indication: HEPATIC NEOPLASM MALIGNANT
     Dates: start: 20091101
  10. AMINOLEHAN [Concomitant]
     Indication: LIVER DISORDER
     Dosage: 500
     Dates: start: 20100630
  11. ONDANSETRON [Concomitant]
     Indication: VOMITING
     Dates: start: 20100630
  12. RANITIDINE [Concomitant]
     Indication: VOMITING
     Dosage: TOTAL DAILY DOSE: 150 MG
     Dates: start: 20100630
  13. METRONIDAZOLE [Concomitant]
     Indication: DIARRHOEA
     Dosage: 1 BOTTLE BID
     Dates: start: 20100630
  14. SILYMARIN PLUS [Concomitant]
     Dosage: TOTAL DAILY DOSE: 420 MG
     Dates: start: 20100630
  15. SMECTA [Concomitant]
     Indication: DIARRHOEA
     Dosage: SACHET AS REQUIRED
     Dates: start: 20100630
  16. RAMIPRIL [Concomitant]
     Indication: HYPERTENSION
     Dates: start: 20100630

REACTIONS (2)
  - DEHYDRATION [None]
  - GENERAL PHYSICAL HEALTH DETERIORATION [None]
